FAERS Safety Report 5077111-3 (Version None)
Quarter: 2006Q3

REPORT INFORMATION
  Report Type: 
  Country: None (occurrence: None)
  Receive Date: 20060810
  Receipt Date: 20051213
  Transmission Date: 20061208
  Serious: No
  Sender: FDA-Public Use
  Company Number: US-GLAXOSMITHKLINE-A0585691A

PATIENT
  Age: 57 Year
  Sex: Female

DRUGS (5)
  1. PAXIL [Suspect]
     Indication: DEPRESSION
     Dosage: 30MG PER DAY
     Route: 048
  2. MIRAPEX [Concomitant]
  3. LEVOXYL [Concomitant]
  4. PROTONIX [Concomitant]
  5. ATENOLOL [Concomitant]

REACTIONS (6)
  - ANXIETY [None]
  - CRYING [None]
  - DRUG INEFFECTIVE [None]
  - MALAISE [None]
  - NERVOUS SYSTEM DISORDER [None]
  - RESTLESSNESS [None]
